FAERS Safety Report 8788996 (Version 1)
Quarter: 2012Q4

REPORT INFORMATION
  Report Type: 
  Country: FR (occurrence: FR)
  Receive Date: 20120917
  Receipt Date: 20120917
  Transmission Date: 20130627
  Serious: Yes (Hospitalization)
  Sender: FDA-Public Use
  Company Number: FR-AMGEN-FRASP2012057593

PATIENT
  Age: 39 Year
  Sex: Female

DRUGS (7)
  1. ENBREL [Suspect]
     Indication: RHEUMATOID ARTHRITIS
     Dosage: 50 mg, weekly
     Route: 058
     Dates: start: 2005, end: 201202
  2. NOVATREX /00113801/ [Concomitant]
     Dosage: UNK
  3. SPECIAFOLDINE [Concomitant]
     Dosage: UNK
  4. DOLIPRANE [Concomitant]
     Dosage: UNK
  5. IBUPROFEN [Concomitant]
     Dosage: UNK
  6. UVEDOSE [Concomitant]
     Dosage: UNK
  7. TARDYFERON [Concomitant]
     Dosage: UNK

REACTIONS (2)
  - Chillblains [Recovering/Resolving]
  - Cutaneous lupus erythematosus [Recovering/Resolving]
